FAERS Safety Report 4882654-9 (Version None)
Quarter: 2006Q1

REPORT INFORMATION
  Report Type: 
  Country: None (occurrence: None)
  Receive Date: 20060113
  Receipt Date: 20051228
  Transmission Date: 20060701
  Serious: Yes (Hospitalization)
  Sender: FDA-Public Use
  Company Number: 2005BI019337

PATIENT
  Age: 65 Year
  Sex: Male

DRUGS (9)
  1. AVONEX [Suspect]
     Indication: MULTIPLE SCLEROSIS
     Dosage: 30 UG; QW; IM
     Route: 030
     Dates: start: 20030917
  2. ENDOCET [Concomitant]
  3. PROVIGIL [Concomitant]
  4. ZOLOFT [Concomitant]
  5. VALIUM [Concomitant]
  6. ACTONEL [Concomitant]
  7. OS-CAL [Concomitant]
  8. FLOMAX [Concomitant]
  9. SPIRONOLACTONE [Concomitant]

REACTIONS (4)
  - INADEQUATE DIET [None]
  - INGROWING NAIL [None]
  - VASCULAR BYPASS GRAFT [None]
  - VASCULAR OCCLUSION [None]
